FAERS Safety Report 17004235 (Version 1)
Quarter: 2019Q4

REPORT INFORMATION
  Report Type: Report from Study
  Country: CA (occurrence: CA)
  Receive Date: 20191107
  Receipt Date: 20191107
  Transmission Date: 20200122
  Serious: Yes (Hospitalization, Other)
  Sender: FDA-Public Use
  Company Number: CA-BRISTOL-MYERS SQUIBB COMPANY-BMS-2019-103431

PATIENT
  Age: 73 Year
  Sex: Female
  Weight: 84 kg

DRUGS (7)
  1. ABATACEPT [Suspect]
     Active Substance: ABATACEPT
     Indication: PRODUCT USED FOR UNKNOWN INDICATION
     Dosage: UNK
     Route: 065
  2. RITUXIMAB. [Suspect]
     Active Substance: RITUXIMAB
     Indication: RHEUMATOID ARTHRITIS
     Dosage: 1000 MILLIGRAM
     Route: 042
  3. ACETAMINOPHEN. [Concomitant]
     Active Substance: ACETAMINOPHEN
     Indication: PREMEDICATION
     Dosage: 1000 MILLIGRAM
     Route: 048
  4. DIPHENHYDRAMINE HYDROCHLORIDE. [Concomitant]
     Active Substance: DIPHENHYDRAMINE HYDROCHLORIDE
     Indication: PREMEDICATION
     Dosage: 50 MILLIGRAM
     Route: 048
  5. SENNOSIDES. [Concomitant]
     Active Substance: SENNOSIDES
     Indication: PROPHYLAXIS
     Dosage: UNK
     Route: 065
  6. METHYLPREDNISOLONE. [Concomitant]
     Active Substance: METHYLPREDNISOLONE
     Indication: PREMEDICATION
     Dosage: 100 MILLIGRAM
     Route: 042
  7. PREDNISONE. [Concomitant]
     Active Substance: PREDNISONE
     Indication: PREMEDICATION
     Dosage: 50 GRAM
     Route: 048

REACTIONS (9)
  - Back pain [Recovered/Resolved]
  - Atrial fibrillation [Recovered/Resolved]
  - Infusion related reaction [Recovered/Resolved]
  - Osteoporosis [Recovered/Resolved]
  - Arthralgia [Recovered/Resolved]
  - Drug ineffective [Recovered/Resolved]
  - Nervousness [Recovered/Resolved]
  - Spinal cord abscess [Recovered/Resolved]
  - Infection [Recovered/Resolved]
